FAERS Safety Report 8826438 (Version 3)
Quarter: 2012Q4

REPORT INFORMATION
  Report Type: Report from Study
  Country: DE (occurrence: DE)
  Receive Date: 20121005
  Receipt Date: 20121024
  Transmission Date: 20130627
  Serious: Yes (Hospitalization)
  Sender: FDA-Public Use
  Company Number: PHHY2012DE086515

PATIENT
  Age: 72 Year
  Sex: Male
  Weight: 73 kg

DRUGS (10)
  1. ZOLEDRONATE [Suspect]
     Indication: BONE DISORDER
     Dosage: 4 mg, UNK
     Route: 042
     Dates: start: 20101202
  2. ZOLEDRONATE [Suspect]
     Dosage: 4 mg, Every 4 weeks
     Route: 042
     Dates: start: 20101230
  3. ZOLEDRONATE [Suspect]
     Dosage: 4 mg, Every 4 weeks
     Route: 042
     Dates: start: 20110127
  4. ZOLEDRONATE [Suspect]
     Dosage: 4 mg, Every 4 weeks
     Route: 042
     Dates: start: 20110224
  5. ZOLEDRONATE [Suspect]
     Dosage: 4 mg, Every 4 weeks
     Route: 042
     Dates: start: 20110329
  6. ZOLEDRONATE [Suspect]
     Dosage: 4 mg, Every 4 weeks
     Route: 042
     Dates: start: 20110428
  7. ZOLEDRONATE [Suspect]
     Dosage: 4 mg, Every 4 weeks
     Route: 042
     Dates: start: 20110526
  8. ZOLEDRONATE [Suspect]
     Dosage: 4 mg, Every 4 weeks
     Route: 042
     Dates: start: 20110623, end: 20120612
  9. ZOLADEX [Concomitant]
     Dosage: UNK UKN, UNK
     Dates: start: 20010801
  10. LEUPRORELIN [Concomitant]
     Dosage: UNK UKN, UNK
     Dates: start: 20061101

REACTIONS (3)
  - Osteonecrosis of jaw [Recovered/Resolved]
  - Pain in jaw [Unknown]
  - Bone lesion [Unknown]
